FAERS Safety Report 4414484-6 (Version None)
Quarter: 2004Q3

REPORT INFORMATION
  Report Type: 
  Country: None (occurrence: None)
  Receive Date: 20040702
  Receipt Date: 20031013
  Transmission Date: 20050211
  Serious: Yes (Death)
  Sender: FDA-Public Use
  Company Number: 349296

PATIENT
  Age: 51 Year
  Sex: Female
  Weight: 70.5 kg

DRUGS (6)
  1. KLONOPIN [Suspect]
     Dosage: 4 MG 2 PER DAY ORAL
     Route: 048
  2. NARCOTICS NOS (NARCOTICS NOS) [Concomitant]
  3. BACLOFEN [Concomitant]
  4. PREMARIN (ESTROGENS, CONGUGATED) [Concomitant]
  5. ZOCOR [Concomitant]
  6. NEUROTONIN (GENERIC COMPONENTS(S) UNKNOWN) [Concomitant]

REACTIONS (2)
  - DEATH [None]
  - HEADACHE [None]
